FAERS Safety Report 8010101-7 (Version None)
Quarter: 2011Q4

REPORT INFORMATION
  Report Type: 
  Country: None (occurrence: None)
  Receive Date: 20111228
  Receipt Date: 20111223
  Transmission Date: 20120403
  Serious: Yes (Other)
  Sender: FDA-Public Use
  Company Number: US-BRISTOL-MYERS SQUIBB COMPANY-16244998

PATIENT
  Age: 79 Year
  Sex: Male

DRUGS (5)
  1. LOSARTAN POTASSIUM [Concomitant]
     Route: 048
     Dates: start: 20080601
  2. HYDROCHLOROTHIAZIDE [Concomitant]
     Route: 048
     Dates: start: 20111004
  3. GLIPIZIDE [Concomitant]
     Route: 048
     Dates: start: 20060301
  4. YERVOY [Suspect]
     Indication: MALIGNANT MELANOMA
     Dosage: IVPB,3MG/KG,DOSE1:28AUG11;LOT:917039(8-13)917355(11-13),DOSE:2;19SEP11;LOT:917039(8-13)917355(11-13)
     Route: 042
     Dates: start: 20110829, end: 20110919
  5. METFORMIN HCL [Concomitant]
     Route: 048
     Dates: start: 20070101

REACTIONS (3)
  - CEREBROVASCULAR ACCIDENT [None]
  - FATIGUE [None]
  - DECREASED APPETITE [None]
